FAERS Safety Report 14726529 (Version 2)
Quarter: 2018Q2

REPORT INFORMATION
  Report Type: Spontaneous
  Country: US (occurrence: US)
  Receive Date: 20180406
  Receipt Date: 20180425
  Transmission Date: 20180711
  Serious: No
  Sender: FDA-Public Use
  Company Number: US-PFIZER INC-2018140013

PATIENT
  Sex: Male

DRUGS (14)
  1. GABAPENTIN. [Suspect]
     Active Substance: GABAPENTIN
     Indication: NEUROPATHY PERIPHERAL
     Dosage: 2400 MG, DAILY
  2. GABAPENTIN. [Suspect]
     Active Substance: GABAPENTIN
     Indication: PAIN IN EXTREMITY
     Dosage: 600 MG, DAILY
  3. GABAPENTIN. [Suspect]
     Active Substance: GABAPENTIN
     Indication: BURNING SENSATION
  4. NORTRIPTYLINE [Suspect]
     Active Substance: NORTRIPTYLINE
     Indication: PAIN
  5. LIPITOR [Concomitant]
     Active Substance: ATORVASTATIN CALCIUM
     Dosage: 40 MG, UNK
  6. COLACE [Concomitant]
     Active Substance: DOCUSATE SODIUM
     Dosage: UNK
  7. GABAPENTIN. [Suspect]
     Active Substance: GABAPENTIN
     Indication: ARTHRITIS
     Dosage: 1800 MG, DAILY
  8. NORTRIPTYLINE [Suspect]
     Active Substance: NORTRIPTYLINE
     Indication: DIABETIC NEUROPATHY
     Dosage: 20 UNK, DAILY (4 PER DAY)
  9. METFORMIN [Concomitant]
     Active Substance: METFORMIN HYDROCHLORIDE
     Dosage: 1000 MG, UNK
  10. GABAPENTIN. [Suspect]
     Active Substance: GABAPENTIN
     Indication: DIABETIC NEUROPATHY
     Dosage: 3000 MG, UNK
  11. NORTRIPTYLINE [Suspect]
     Active Substance: NORTRIPTYLINE
     Indication: ARTHRITIS
  12. NORTRIPTYLINE [Suspect]
     Active Substance: NORTRIPTYLINE
     Indication: NEUROPATHY PERIPHERAL
  13. LISINOPRIL. [Concomitant]
     Active Substance: LISINOPRIL
     Dosage: 40 MG, UNK
  14. RAPID [Concomitant]
     Dosage: UNK

REACTIONS (1)
  - Drug ineffective for unapproved indication [Unknown]
